FAERS Safety Report 4680050-0 (Version None)
Quarter: 2005Q2

REPORT INFORMATION
  Report Type: 
  Country: None (occurrence: None)
  Receive Date: 20050531
  Receipt Date: 20050518
  Transmission Date: 20051028
  Serious: Yes (Death)
  Sender: FDA-Public Use
  Company Number: 2005077002

PATIENT
  Sex: Female

DRUGS (1)
  1. MEDROXYPROGESTERONE ACETATE [Suspect]
     Indication: UTERINE CANCER
     Dosage: ORAL
     Route: 048

REACTIONS (2)
  - EMBOLISM VENOUS [None]
  - SUPERIOR VENA CAVAL OCCLUSION [None]
